FAERS Safety Report 8426308-0 (Version None)
Quarter: 2012Q2

REPORT INFORMATION
  Report Type: 
  Country: None (occurrence: None)
  Receive Date: 20120611
  Receipt Date: 20120531
  Transmission Date: 20120825
  Serious: Yes (Hospitalization)
  Sender: FDA-Public Use
  Company Number: US-UCBSA-058584

PATIENT
  Age: 61 Year
  Sex: Female
  Weight: 174.2 kg

DRUGS (16)
  1. CIMZIA [Suspect]
     Dosage: NO. OF DOSES RECEIVED: 3
     Route: 058
     Dates: start: 20111011, end: 20111110
  2. METHOTREXATE [Concomitant]
     Indication: RHEUMATOID ARTHRITIS
     Route: 048
     Dates: start: 20110127
  3. HYDROCHLOROTHIAZIDE [Concomitant]
     Indication: HYPERTENSION
     Route: 048
     Dates: start: 20101101
  4. FOLIC ACID [Concomitant]
     Indication: VITAMIN SUPPLEMENTATION
     Route: 048
     Dates: start: 20110127
  5. VITAMIN D [Concomitant]
     Indication: VITAMIN SUPPLEMENTATION
     Route: 048
     Dates: start: 20101223
  6. CALCIUM+VITAMIN D [Concomitant]
     Indication: VITAMIN SUPPLEMENTATION
     Dosage: 1 TABLET DAILY
     Route: 048
     Dates: start: 20100501
  7. VITAMIN B-12 [Concomitant]
     Indication: VITAMIN SUPPLEMENTATION
     Route: 048
     Dates: start: 20101101
  8. CLONIDINE [Concomitant]
     Indication: HYPERTENSION
     Route: 048
     Dates: start: 20101101
  9. CIMZIA [Suspect]
     Dosage: NO. OF DOSES RECEIVED: 14
     Route: 058
     Dates: start: 20111122, end: 20120521
  10. PREDNISONE [Concomitant]
     Indication: RHEUMATOID ARTHRITIS
     Route: 048
     Dates: start: 20110524
  11. HYDROCODONE BITARTRATE AND ACETAMINOPHEN [Concomitant]
     Indication: RHEUMATOID ARTHRITIS
     Dosage: 2.5/500
     Route: 048
     Dates: start: 20101124
  12. DILTIAZEM [Concomitant]
     Indication: HYPERTENSION
     Route: 048
     Dates: start: 20101101
  13. GABAPENTIN [Concomitant]
     Indication: NEURALGIA
     Route: 048
     Dates: start: 20101026
  14. CARVEDILOL [Concomitant]
     Indication: HYPERTENSION
     Route: 048
     Dates: start: 20101101
  15. MULTI-VITAMINS [Concomitant]
     Indication: SUPPLEMENTATION THERAPY
     Dosage: 1 TABLET
     Route: 048
     Dates: start: 20101101
  16. PROLIA [Concomitant]
     Indication: OSTEOPOROSIS
     Route: 058
     Dates: start: 20111228

REACTIONS (1)
  - STAPHYLOCOCCAL SEPSIS [None]
